FAERS Safety Report 8950859 (Version 2)
Quarter: 2013Q1

REPORT INFORMATION
  Report Type: Spontaneous
  Country: BR (occurrence: None)
  Receive Date: 20121128
  Receipt Date: 20121207
  Transmission Date: 20140127
  Serious: Yes (Other)
  Sender: FDA-Public Use
  Company Number: DSA_61045_2012

PATIENT
  Age: 43 Year
  Sex: Female

DRUGS (3)
  1. CARDIZEM [Suspect]
     Indication: HYPERTENSION
     Dosage: DF ORAL
     Route: 048
     Dates: start: 200806, end: 2012
  2. HYDROCHLOROTHIAZIDE\VALSARTAN [Suspect]
     Indication: HYPERTENSION
     Dosage: DF ORAL
     Route: 048
     Dates: start: 200806, end: 2012
  3. CAPTOPRIL [Concomitant]

REACTIONS (4)
  - Blood pressure increased [None]
  - Panic attack [None]
  - Heart rate increased [None]
  - Drug ineffective [None]
